FAERS Safety Report 17214781 (Version 1)
Quarter: 2020Q1

REPORT INFORMATION
  Report Type: Spontaneous
  Country: US (occurrence: US)
  Receive Date: 20191229
  Receipt Date: 20191229
  Transmission Date: 20200409
  Serious: No
  Sender: FDA-Public Use
  Company Number: None

PATIENT
  Sex: Female

DRUGS (1)
  1. IRBESARTAN TABS 300 MG [Suspect]
     Active Substance: IRBESARTAN
     Indication: HYPERTENSION
     Dosage: ?          QUANTITY:1 TABLET(S);?
     Route: 048
     Dates: start: 20190922, end: 20191229

REACTIONS (3)
  - Wrong technique in product usage process [None]
  - Product physical issue [None]
  - Incorrect dose administered [None]

NARRATIVE: CASE EVENT DATE: 20190922
